FAERS Safety Report 10250723 (Version 1)
Quarter: 2014Q2

REPORT INFORMATION
  Report Type: Spontaneous
  Country: IT (occurrence: IT)
  Receive Date: 20140620
  Receipt Date: 20140620
  Transmission Date: 20141212
  Serious: Yes (Other)
  Sender: FDA-Public Use
  Company Number: IT-ELI_LILLY_AND_COMPANY-IT201406003775

PATIENT
  Age: 70 Year
  Sex: Female

DRUGS (7)
  1. HUMALOG LISPRO [Suspect]
     Indication: DIABETES MELLITUS
     Dosage: 8 IU, TID
     Route: 058
     Dates: start: 20130101, end: 20140108
  2. LANTUS [Suspect]
     Indication: DIABETES MELLITUS
     Dosage: 20 IU, QD
     Route: 058
     Dates: start: 20130101, end: 20140108
  3. BISOPROLOL FUMARATE [Concomitant]
     Dosage: 1.25 MG, UNK
     Route: 048
  4. AMLODIPINE [Concomitant]
     Dosage: 10 MG, UNK
     Route: 048
  5. CRESTOR [Concomitant]
     Route: 048
  6. EUTIROX [Concomitant]
     Dosage: 1 DF, UNK
     Route: 048
  7. CARDIOASPIRIN [Concomitant]
     Dosage: 1 DF, UNK
     Route: 048

REACTIONS (2)
  - Hypoglycaemia [Recovering/Resolving]
  - Joint injury [Recovering/Resolving]
